FAERS Safety Report 18112815 (Version 1)
Quarter: 2020Q3

REPORT INFORMATION
  Report Type: Spontaneous
  Country: US (occurrence: US)
  Receive Date: 20200804
  Receipt Date: 20200804
  Transmission Date: 20201103
  Serious: Yes (Life-Threatening, Hospitalization)
  Sender: FDA-Public Use
  Company Number: None

PATIENT
  Age: 70 Year
  Sex: Female
  Weight: 65.3 kg

DRUGS (17)
  1. ACETAMINOPHEN. [Concomitant]
     Active Substance: ACETAMINOPHEN
     Dates: start: 20200517, end: 20200523
  2. DOCUSATE [Concomitant]
     Active Substance: DOCUSATE
     Dates: start: 20200517, end: 20200624
  3. SENNA [Concomitant]
     Active Substance: SENNA LEAF\SENNOSIDES\SENNOSIDES A AND B
     Dates: start: 20200517, end: 20200524
  4. MAALOX ANTACID [Concomitant]
     Active Substance: ALUMINUM HYDROXIDE\DIMETHICONE\MAGNESIUM HYDROXIDE
     Dates: start: 20200520, end: 20200624
  5. CHLORASEPTIC LOZENGE [Concomitant]
     Dates: start: 20200519, end: 20200624
  6. PREDNISONE. [Concomitant]
     Active Substance: PREDNISONE
     Dates: start: 20200519
  7. AMLODIPINE [Concomitant]
     Active Substance: AMLODIPINE BESYLATE
     Dates: start: 20200517, end: 20200702
  8. ASPIRIN EC [Concomitant]
     Active Substance: ASPIRIN
     Dates: start: 20200518, end: 20200608
  9. MYCOPHENOLATE SODIUM [Concomitant]
     Active Substance: MYCOPHENOLATE SODIUM
     Dates: start: 20200516
  10. VENLAFAXINE [Concomitant]
     Active Substance: VENLAFAXINE HYDROCHLORIDE
     Dates: start: 20200516
  11. SEVELAMER CARBONATE. [Suspect]
     Active Substance: SEVELAMER CARBONATE
     Indication: HYPERPHOSPHATAEMIA
     Route: 048
     Dates: start: 20200521, end: 20200521
  12. OXYCODONE [Concomitant]
     Active Substance: OXYCODONE
     Dates: start: 20200516, end: 20200624
  13. TUMS [Concomitant]
     Active Substance: CALCIUM CARBONATE
     Dates: start: 20200518, end: 20200531
  14. METOCLOPRAMIDE. [Concomitant]
     Active Substance: METOCLOPRAMIDE
     Dates: start: 20200516, end: 20200523
  15. PANTOPRAZOLE [Concomitant]
     Active Substance: PANTOPRAZOLE
     Dates: start: 20200519, end: 20200701
  16. SIMVASTATIN. [Concomitant]
     Active Substance: SIMVASTATIN
     Dates: start: 20200516
  17. TACROLIMUS. [Concomitant]
     Active Substance: TACROLIMUS
     Dates: start: 20200516

REACTIONS (5)
  - Crystal deposit intestine [None]
  - Gastrooesophageal reflux disease [None]
  - Oesophageal ulcer [None]
  - Condition aggravated [None]
  - Necrotising oesophagitis [None]

NARRATIVE: CASE EVENT DATE: 20200521
